FAERS Safety Report 7202705-6 (Version None)
Quarter: 2010Q4

REPORT INFORMATION
  Report Type: 
  Country: None (occurrence: None)
  Receive Date: 20101229
  Receipt Date: 20101227
  Transmission Date: 20110411
  Serious: Yes (Disabling)
  Sender: FDA-Public Use
  Company Number: AT-B.I. PHARMACEUTICALS,INC./RIDGEFIELD-2010-DE-07047DE

PATIENT
  Sex: Female
  Weight: 64 kg

DRUGS (6)
  1. DABIGATRAN [Suspect]
     Indication: CEREBROVASCULAR ACCIDENT PROPHYLAXIS
     Dosage: DOSING BLINDED
     Route: 048
     Dates: start: 20100210, end: 20100720
  2. DABIGATRAN [Suspect]
     Indication: ATRIAL FIBRILLATION
  3. OLMETEC [Concomitant]
     Dosage: 20/12.5 MG
  4. OLMETEC [Concomitant]
     Dosage: 10 MG
  5. DOXAZOSIN [Concomitant]
     Dosage: 4 MG
  6. TRAMABENE [Concomitant]
     Dosage: 50 MG

REACTIONS (1)
  - HAEMATOMA [None]
